FAERS Safety Report 15266190 (Version 4)
Quarter: 2018Q4

REPORT INFORMATION
  Report Type: Spontaneous
  Country: US (occurrence: US)
  Receive Date: 20180810
  Receipt Date: 20181002
  Transmission Date: 20190204
  Serious: Yes (Other)
  Sender: FDA-Public Use
  Company Number: US-IMPAX LABORATORIES, INC-2018-IPXL-02323

PATIENT
  Age: 75 Year
  Sex: Female

DRUGS (3)
  1. RYTARY [Suspect]
     Active Substance: CARBIDOPA\LEVODOPA
     Dosage: 48.75/195 MG, TWO CAPSULES, FIVE TIMES DAILY
     Route: 048
  2. RYTARY [Suspect]
     Active Substance: CARBIDOPA\LEVODOPA
     Indication: PARKINSON^S DISEASE
     Dosage: UNK
     Route: 048
     Dates: start: 2014
  3. RYTARY [Suspect]
     Active Substance: CARBIDOPA\LEVODOPA
     Dosage: 48.75/195 MG, THREE CAPSULES, FOUR TIMES DAILY
     Route: 048

REACTIONS (14)
  - Weight decreased [Recovering/Resolving]
  - Drug ineffective [Unknown]
  - Wound [Not Recovered/Not Resolved]
  - Pain [Recovering/Resolving]
  - Asthenia [Recovering/Resolving]
  - Anxiety [Recovering/Resolving]
  - Feeling cold [Not Recovered/Not Resolved]
  - Hyperhidrosis [Not Recovered/Not Resolved]
  - Expired product administered [Unknown]
  - Dyskinesia [Not Recovered/Not Resolved]
  - Hypophagia [Recovering/Resolving]
  - Drug effect incomplete [Not Recovered/Not Resolved]
  - Arthritis [Unknown]
  - Therapeutic response shortened [Unknown]

NARRATIVE: CASE EVENT DATE: 20180627
